FAERS Safety Report 7754533-0 (Version None)
Quarter: 2011Q3

REPORT INFORMATION
  Report Type: 
  Country: None (occurrence: None)
  Receive Date: 20110915
  Receipt Date: 20101228
  Transmission Date: 20111222
  Serious: No
  Sender: FDA-Public Use
  Company Number: US-BAYER-2011-000605

PATIENT
  Age: 48 Year
  Sex: Female

DRUGS (2)
  1. GASTROGRAFIN [Concomitant]
  2. ULTRAVIST 150 [Suspect]
     Indication: COMPUTERISED TOMOGRAM
     Dosage: 120 ML, ONCE
     Route: 042
     Dates: start: 20101228, end: 20101228

REACTIONS (2)
  - URTICARIA [None]
  - CHEST PAIN [None]
